FAERS Safety Report 17222923 (Version 8)
Quarter: 2021Q4

REPORT INFORMATION
  Report Type: Report from Study
  Country: JP (occurrence: JP)
  Receive Date: 20200102
  Receipt Date: 20211217
  Transmission Date: 20220303
  Serious: Yes (Death, Hospitalization, Disabling, Other)
  Sender: FDA-Public Use
  Company Number: JP-ASTELLAS-2019JP004483

PATIENT
  Age: 55 Year
  Sex: Male
  Weight: 53 kg

DRUGS (13)
  1. GILTERITINIB [Suspect]
     Active Substance: GILTERITINIB
     Indication: Acute myeloid leukaemia refractory
     Route: 048
     Dates: start: 20190206
  2. GILTERITINIB [Suspect]
     Active Substance: GILTERITINIB
     Indication: Acute myeloid leukaemia recurrent
     Route: 048
     Dates: start: 20190301, end: 20190314
  3. GILTERITINIB [Suspect]
     Active Substance: GILTERITINIB
     Route: 048
     Dates: start: 20190719, end: 20190729
  4. GILTERITINIB [Suspect]
     Active Substance: GILTERITINIB
     Route: 048
     Dates: start: 20190730, end: 20190811
  5. GILTERITINIB [Suspect]
     Active Substance: GILTERITINIB
     Route: 048
     Dates: start: 20190812, end: 20190815
  6. GILTERITINIB [Suspect]
     Active Substance: GILTERITINIB
     Route: 048
     Dates: start: 20190816, end: 20190819
  7. GILTERITINIB [Suspect]
     Active Substance: GILTERITINIB
     Route: 048
     Dates: start: 20190820, end: 20190826
  8. GILTERITINIB [Suspect]
     Active Substance: GILTERITINIB
     Route: 048
     Dates: start: 20190827
  9. GILTERITINIB [Suspect]
     Active Substance: GILTERITINIB
     Dosage: UNK UNK, UNKNOWN FREQ.
     Route: 048
     Dates: end: 20200313
  10. MEROPENEM [Suspect]
     Active Substance: MEROPENEM
     Indication: Product used for unknown indication
     Dosage: UNK UNK, UNKNOWN FREQ.
     Route: 065
  11. PREDNISOLONE [Concomitant]
     Active Substance: PREDNISOLONE
     Indication: Pyrexia
     Route: 065
     Dates: start: 20191221
  12. DOPAMINE HYDROCHLORIDE [Concomitant]
     Active Substance: DOPAMINE HYDROCHLORIDE
     Indication: Cardiac failure
     Dosage: UNK UNK, UNKNOWN FREQ.
     Route: 065
     Dates: start: 20200313
  13. ALBUMIN HUMAN [Concomitant]
     Active Substance: ALBUMIN HUMAN
     Indication: Cardiac failure
     Dosage: UNK UNK, UNKNOWN FREQ.
     Route: 065
     Dates: start: 20200313

REACTIONS (12)
  - Rash [Recovered/Resolved]
  - Myelosuppression [Recovered/Resolved]
  - Febrile neutropenia [Recovering/Resolving]
  - Cardiac failure [Recovering/Resolving]
  - Skin disorder [Recovering/Resolving]
  - Neutrophil count increased [Not Recovered/Not Resolved]
  - Liver disorder [Recovered/Resolved]
  - Infection [Recovering/Resolving]
  - Blood creatinine increased [Recovering/Resolving]
  - Pyrexia [Recovered/Resolved]
  - Rash [Recovered/Resolved]
  - Acute myeloid leukaemia [Fatal]

NARRATIVE: CASE EVENT DATE: 20190301
